FAERS Safety Report 20146735 (Version 4)
Quarter: 2022Q1

REPORT INFORMATION
  Report Type: Spontaneous
  Country: CH (occurrence: CH)
  Receive Date: 20211203
  Receipt Date: 20220302
  Transmission Date: 20220423
  Serious: Yes (Disabling, Other)
  Sender: FDA-Public Use
  Company Number: None

PATIENT
  Age: 5 Decade
  Sex: Male
  Weight: 65 kg

DRUGS (2)
  1. AMLODIPINE BESYLATE\OLMESARTAN MEDOXOMIL [Suspect]
     Active Substance: AMLODIPINE BESYLATE\OLMESARTAN MEDOXOMIL
     Indication: Hypertension
     Dosage: 20/5 MG, QD (20/5 MG, 1 IN 1 D)
     Route: 048
     Dates: start: 201805
  2. AMLODIPINE BESYLATE\OLMESARTAN MEDOXOMIL [Suspect]
     Active Substance: AMLODIPINE BESYLATE\OLMESARTAN MEDOXOMIL
     Dosage: 40/5 MG (40/5 MG, 1 IN 1 D)
     Route: 048
     Dates: start: 201808, end: 201910

REACTIONS (8)
  - General physical health deterioration [Recovering/Resolving]
  - Tooth infection [Recovered/Resolved]
  - Arrhythmia [Recovered/Resolved]
  - Arthralgia [Unknown]
  - Disease progression [Unknown]
  - Somnolence [Unknown]
  - Ear congestion [Recovering/Resolving]
  - Nasal congestion [Recovering/Resolving]

NARRATIVE: CASE EVENT DATE: 20180101
